FAERS Safety Report 6579780-5 (Version None)
Quarter: 2010Q1

REPORT INFORMATION
  Report Type: 
  Country: None (occurrence: None)
  Receive Date: 20100212
  Receipt Date: 20100210
  Transmission Date: 20100710
  Serious: Yes (Other)
  Sender: FDA-Public Use
  Company Number: D0066416A

PATIENT
  Sex: Male

DRUGS (1)
  1. IMIGRAN [Suspect]
     Route: 048

REACTIONS (5)
  - DILATATION VENTRICULAR [None]
  - DRUG ABUSE [None]
  - EJECTION FRACTION DECREASED [None]
  - OVERDOSE [None]
  - VENTRICULAR EXTRASYSTOLES [None]
